FAERS Safety Report 7099570-7 (Version None)
Quarter: 2010Q4

REPORT INFORMATION
  Report Type: 
  Country: None (occurrence: None)
  Receive Date: 20101112
  Receipt Date: 20090108
  Transmission Date: 20110411
  Serious: No
  Sender: FDA-Public Use
  Company Number: US-KINGPHARMUSA00001-K200900013

PATIENT
  Age: 55 Year
  Sex: Female

DRUGS (5)
  1. CYTOMEL [Suspect]
     Indication: HYPOTHYROIDISM
     Dosage: 12.5 MCG, QD
     Route: 048
  2. ARMOUR THYROID [Suspect]
     Indication: HYPOTHYROIDISM
     Dosage: 15 MG, QD
     Route: 048
     Dates: start: 20081130, end: 20081214
  3. ARMOUR THYROID [Suspect]
     Dosage: 45 MG, QD
     Route: 048
     Dates: start: 20081214, end: 20081220
  4. ARMOUR THYROID [Suspect]
     Dosage: 60 MG, QD
     Route: 048
     Dates: start: 20081221, end: 20081224
  5. ARMOUR THYROID [Suspect]
     Dosage: 60 MG, BID
     Route: 048
     Dates: start: 20081225

REACTIONS (1)
  - PALPITATIONS [None]
